FAERS Safety Report 23396265 (Version 1)
Quarter: 2024Q1

REPORT INFORMATION
  Report Type: Spontaneous
  Country: GB (occurrence: GB)
  Receive Date: 20240112
  Receipt Date: 20240112
  Transmission Date: 20240410
  Serious: Yes (Hospitalization, Other)
  Sender: FDA-Public Use
  Company Number: GB-AUROBINDO-AUR-APL-2011-03726

PATIENT
  Age: 29 Year
  Sex: Female

DRUGS (20)
  1. AMOXICILLIN [Suspect]
     Active Substance: AMOXICILLIN
     Indication: Product used for unknown indication
     Dosage: UNK
     Route: 065
  2. FLUCONAZOLE [Suspect]
     Active Substance: FLUCONAZOLE
     Indication: Product used for unknown indication
     Dosage: UNK UNK,UNK,
     Route: 065
  3. ACYCLOVIR [Suspect]
     Active Substance: ACYCLOVIR
     Indication: Necrotising retinitis
     Dosage: 10 MG/KG,3 TIMES A DAY,
     Route: 042
  4. ACYCLOVIR [Suspect]
     Active Substance: ACYCLOVIR
     Dosage: 400 MG,FOUR TIMES/DAY,
     Route: 048
  5. ACYCLOVIR [Suspect]
     Active Substance: ACYCLOVIR
     Dosage: 800 MG,5 TIMES A DAY,
     Route: 065
  6. COTRIMOXAZOLE [Suspect]
     Active Substance: SULFAMETHOXAZOLE\TRIMETHOPRIM
     Indication: Product used for unknown indication
     Dosage: UNK
     Route: 065
  7. COMBIVIR [Suspect]
     Active Substance: LAMIVUDINE\ZIDOVUDINE
     Indication: Product used for unknown indication
     Dosage: UNK
     Route: 065
  8. FAMCICLOVIR [Suspect]
     Active Substance: FAMCICLOVIR
     Indication: Product used for unknown indication
     Dosage: UNK
     Route: 048
  9. NEVIRAPINE [Suspect]
     Active Substance: NEVIRAPINE
     Indication: Product used for unknown indication
     Dosage: UNK
     Route: 065
  10. HYDROCORTISONE [Suspect]
     Active Substance: HYDROCORTISONE
     Indication: Angioedema
     Dosage: 50 MG,3 TIMES A DAY,
     Route: 042
  11. HYDROCORTISONE [Suspect]
     Active Substance: HYDROCORTISONE
     Indication: Rash
  12. DEXAMETHASONE [Concomitant]
     Active Substance: DEXAMETHASONE
     Indication: Product used for unknown indication
     Dosage: 1 %,FOUR TIMES/DAY,
     Route: 061
  13. PREDNISOLONE [Concomitant]
     Active Substance: PREDNISOLONE
     Indication: Product used for unknown indication
     Dosage: 40 MG,UNK,
     Route: 048
  14. CHLORPHENIRAMINE MALEATE [Concomitant]
     Active Substance: CHLORPHENIRAMINE MALEATE
     Indication: Hypersensitivity
     Dosage: 20 MILLIGRAM PER CUBIC METRE
     Route: 042
  15. CETIRIZINE [Concomitant]
     Active Substance: CETIRIZINE HYDROCHLORIDE
     Indication: Product used for unknown indication
     Dosage: 40 MILLIGRAM, ONCE A DAY
     Route: 048
  16. DAPSONE [Concomitant]
     Active Substance: DAPSONE
     Indication: Product used for unknown indication
     Dosage: UNK
     Route: 065
  17. EFAVIRENZ [Concomitant]
     Active Substance: EFAVIRENZ
     Indication: HIV infection
     Dosage: UNK
     Route: 065
  18. LAMIVUDINE [Concomitant]
     Active Substance: LAMIVUDINE
     Indication: HIV infection
     Dosage: UNK
     Route: 065
  19. TENOFOVIR [Concomitant]
     Active Substance: TENOFOVIR
     Indication: Product used for unknown indication
     Dosage: UNK
     Route: 065
  20. STAVUDINE [Concomitant]
     Active Substance: STAVUDINE
     Indication: Product used for unknown indication
     Dosage: UNK
     Route: 065

REACTIONS (16)
  - Necrotising retinitis [Recovered/Resolved]
  - Retinitis [Recovering/Resolving]
  - Visual impairment [Recovered/Resolved]
  - Vision blurred [Recovered/Resolved]
  - Cataract [Recovered/Resolved]
  - CD4 lymphocytes decreased [Recovered/Resolved]
  - Drug hypersensitivity [Recovered/Resolved]
  - Haemoglobin decreased [Recovering/Resolving]
  - Angioedema [Recovered/Resolved]
  - Rash erythematous [Recovered/Resolved]
  - Rash maculo-papular [Recovered/Resolved]
  - Rash [Recovered/Resolved]
  - Skin disorder [Recovered/Resolved]
  - Lower respiratory tract infection [Unknown]
  - Chest discomfort [Recovered/Resolved]
  - Swelling [Recovered/Resolved]
